FAERS Safety Report 22384237 (Version 1)
Quarter: 2023Q2

REPORT INFORMATION
  Report Type: Spontaneous
  Country: US (occurrence: None)
  Receive Date: 20230527
  Receipt Date: 20230527
  Transmission Date: 20230722
  Serious: Yes (Other)
  Sender: FDA-Public Use
  Company Number: None

PATIENT
  Age: 36 Year
  Sex: Female

DRUGS (2)
  1. DULOXETINE [Suspect]
     Active Substance: DULOXETINE
     Indication: Anxiety
     Dosage: FREQUENCY : DAILY;?
     Route: 048
     Dates: start: 20220502, end: 20220516
  2. DULOXETINE [Suspect]
     Active Substance: DULOXETINE
     Indication: Depression

REACTIONS (1)
  - Heart rate increased [None]

NARRATIVE: CASE EVENT DATE: 20220502
